FAERS Safety Report 6127150-6 (Version None)
Quarter: 2009Q1

REPORT INFORMATION
  Report Type: 
  Country: None (occurrence: None)
  Receive Date: 20090320
  Receipt Date: 20081020
  Transmission Date: 20090719
  Serious: No
  Sender: FDA-Public Use
  Company Number: US-ABBOTT-08P-163-0482727-00

PATIENT
  Sex: Female
  Weight: 74.91 kg

DRUGS (1)
  1. E.E.S. [Suspect]
     Indication: SINUSITIS
     Route: 048

REACTIONS (1)
  - SKIN BURNING SENSATION [None]
